FAERS Safety Report 19167760 (Version 6)
Quarter: 2023Q1

REPORT INFORMATION
  Report Type: Report from Study
  Country: US (occurrence: US)
  Receive Date: 20210422
  Receipt Date: 20230125
  Transmission Date: 20230417
  Serious: Yes (Other)
  Sender: FDA-Public Use
  Company Number: US-CLINIGEN GROUP PLC/ CLINIGEN HEALTHCARE LTD-US-CLGN-21-00191

PATIENT
  Age: 66 Year
  Sex: Female
  Weight: 51.2 kg

DRUGS (33)
  1. PROLEUKIN [Suspect]
     Active Substance: ALDESLEUKIN
     Indication: Lung neoplasm malignant
     Dosage: EVERY 8-12H
     Route: 042
     Dates: start: 20210326, end: 20210327
  2. LIFILEUCEL [Suspect]
     Active Substance: LIFILEUCEL
     Indication: Lung neoplasm malignant
     Route: 042
     Dates: start: 20210325, end: 20210325
  3. CYCLOPHOSPHAMIDE [Suspect]
     Active Substance: CYCLOPHOSPHAMIDE
     Indication: Lung neoplasm malignant
     Route: 042
     Dates: start: 20210318, end: 20210319
  4. FLUDARABINE [Suspect]
     Active Substance: FLUDARABINE PHOSPHATE
     Indication: Lung neoplasm malignant
     Route: 042
     Dates: start: 20210320, end: 20210324
  5. PEMBROLIZUMAB [Suspect]
     Active Substance: PEMBROLIZUMAB
     Indication: Lung neoplasm malignant
     Route: 042
     Dates: start: 20210317, end: 20210317
  6. LEVAQUIN [Concomitant]
     Active Substance: LEVOFLOXACIN
     Indication: Product used for unknown indication
     Route: 048
  7. DOXYCYCLINE [Concomitant]
     Active Substance: DOXYCYCLINE
     Indication: Product used for unknown indication
  8. ARMOUR THYROID [Concomitant]
     Active Substance: THYROID, PORCINE
     Indication: Product used for unknown indication
     Route: 048
  9. CARDIZEM [Concomitant]
     Active Substance: DILTIAZEM HYDROCHLORIDE
     Indication: Product used for unknown indication
     Route: 048
  10. DILAUDID [Concomitant]
     Active Substance: HYDROMORPHONE HYDROCHLORIDE
     Indication: Chills
     Route: 042
  11. FLONASE [Concomitant]
     Active Substance: FLUTICASONE PROPIONATE
     Indication: Product used for unknown indication
  12. HYDROMORPHONE [Concomitant]
     Active Substance: HYDROMORPHONE
     Indication: Chills
     Route: 042
  13. HALL^S COUGH [Concomitant]
     Indication: Cough
  14. LORAZEPAM [Concomitant]
     Active Substance: LORAZEPAM
     Indication: Anxiety
     Route: 048
  15. LIOTHYRONINE SODIUM [Concomitant]
     Active Substance: LIOTHYRONINE SODIUM
  16. AVEENO [Concomitant]
     Active Substance: DIMETHICONE\HOMOSALATE\OCTINOXATE\OCTISALATE\TITANIUM DIOXIDE
     Indication: Pruritus
     Route: 061
  17. LUBRIDERM [Concomitant]
     Active Substance: AVOBENZONE\HOMOSALATE\OCTISALATE\OCTOCRYLENE\OXYBENZONE
     Indication: Pruritus
     Route: 061
  18. PROTONIX [Concomitant]
     Active Substance: PANTOPRAZOLE SODIUM
     Indication: Product used for unknown indication
     Route: 048
  19. TESSALON [Concomitant]
     Active Substance: BENZONATATE
     Indication: Cough
     Route: 048
  20. VASELINE PURE [Concomitant]
     Active Substance: PETROLATUM
     Indication: Lip dry
     Route: 061
  21. ZOVIRAX [Concomitant]
     Active Substance: ACYCLOVIR
     Indication: Product used for unknown indication
     Route: 048
  22. ALBUTEROL [Concomitant]
     Active Substance: ALBUTEROL
     Indication: Wheezing
  23. CETIRIZINE [Concomitant]
     Active Substance: CETIRIZINE HYDROCHLORIDE
     Indication: Product used for unknown indication
     Route: 048
  24. DEXTROMETHORPHAN\GUAIFENESIN [Concomitant]
     Active Substance: DEXTROMETHORPHAN\GUAIFENESIN
     Indication: Cough
     Route: 048
  25. DIPHENHYDRAMINE [Concomitant]
     Active Substance: DIPHENHYDRAMINE
     Indication: Pruritus
     Route: 042
  26. DOCUSATE [Concomitant]
     Active Substance: DOCUSATE
     Indication: Product used for unknown indication
     Route: 048
  27. FILGRASTIM [Concomitant]
     Active Substance: FILGRASTIM
     Indication: Product used for unknown indication
     Route: 058
  28. LEVALBUTEROL [Concomitant]
     Active Substance: LEVALBUTEROL
     Indication: Product used for unknown indication
  29. OXYCODONE [Concomitant]
     Active Substance: OXYCODONE
     Indication: Pain
  30. RAMELTEON [Concomitant]
     Active Substance: RAMELTEON
     Indication: Insomnia
     Route: 048
  31. SODIUM CHLORIDE [Concomitant]
     Active Substance: SODIUM CHLORIDE
     Indication: Catheter management
     Route: 042
  32. SODIUM CHLORIDE [Concomitant]
     Active Substance: SODIUM CHLORIDE
     Route: 042
  33. INVESTIGATIONAL PRODUCT [Suspect]
     Active Substance: INVESTIGATIONAL PRODUCT

REACTIONS (3)
  - Bronchial obstruction [Recovered/Resolved with Sequelae]
  - Atrial fibrillation [Recovered/Resolved]
  - Hypoxia [Not Recovered/Not Resolved]

NARRATIVE: CASE EVENT DATE: 20210328
